FAERS Safety Report 4285250-X (Version None)
Quarter: 2004Q1

REPORT INFORMATION
  Report Type: 
  Country: None (occurrence: None)
  Receive Date: 20040204
  Receipt Date: 20040127
  Transmission Date: 20041129
  Serious: Yes (Death, Hospitalization)
  Sender: FDA-Public Use
  Company Number: DE-ROCHE-357499

PATIENT
  Age: 65 Year
  Sex: Male
  Weight: 115 kg

DRUGS (39)
  1. UNAT 10 TABLETS [Suspect]
     Route: 048
     Dates: start: 20010723
  2. DIAZEPAM [Suspect]
     Route: 042
     Dates: start: 20010720, end: 20010720
  3. HEPARIN [Suspect]
     Indication: THROMBOSIS PROPHYLAXIS
     Route: 042
     Dates: start: 20010723
  4. ZYLORIC 300 [Suspect]
     Indication: HYPERURICAEMIA
     Route: 048
     Dates: start: 20010721
  5. ASS [Suspect]
     Indication: THROMBOSIS PROPHYLAXIS
     Route: 048
     Dates: start: 20010725
  6. CIPROBAY [Suspect]
     Route: 048
     Dates: start: 20010720, end: 20010724
  7. LASIX [Suspect]
     Indication: RENAL FAILURE
     Route: 042
     Dates: start: 20010720, end: 20010720
  8. LASIX [Suspect]
     Route: 042
     Dates: start: 20010725, end: 20010725
  9. SAROTEN [Suspect]
     Indication: DEPRESSION
     Dosage: DOSE REPORTED AS 10MG-10MG 25MG FOR WHOLE OBSERVATION PERIOD.
     Route: 048
  10. ALT-INSULIN [Suspect]
     Indication: DIABETES MELLITUS
     Route: 058
     Dates: start: 20010720
  11. ACC 600 [Suspect]
     Indication: UNEVALUABLE EVENT
     Route: 048
     Dates: start: 20010720
  12. ATROVENT [Suspect]
     Dosage: MULTIPLE INHALATIONS DAILY.
     Route: 055
     Dates: start: 20010720
  13. BRONCHORETARD [Suspect]
     Route: 048
     Dates: start: 20010720
  14. BRONCHOSPASMIN [Suspect]
     Route: 042
     Dates: start: 20010720
  15. FORADIL [Suspect]
     Dosage: MULTIPLE INHALATIONS DAILY.
     Route: 055
     Dates: start: 20010720
  16. SOLU-DECORTIN H [Suspect]
     Dosage: DOSE REPORTED AS 100-0-50MG
     Route: 042
     Dates: start: 20010720
  17. PANTOZOL [Suspect]
     Indication: PROPHYLAXIS
     Route: 048
     Dates: start: 20010720
  18. LEFAX [Suspect]
     Route: 048
     Dates: start: 20010721, end: 20010721
  19. NITRO [Suspect]
     Indication: ASTHMA
     Dosage: STRENGTH REPORTED AS 50MG/50ML
     Route: 042
     Dates: start: 20010723, end: 20010724
  20. NORVASC [Suspect]
     Indication: HYPERTENSION
     Route: 048
     Dates: start: 20010723
  21. VOLMAX [Suspect]
     Route: 048
     Dates: start: 20010723
  22. BIFITERAL [Suspect]
     Indication: CONSTIPATION
     Route: 048
     Dates: start: 20010724, end: 20010724
  23. AQUAPHOR [Suspect]
     Route: 048
     Dates: start: 20010724
  24. SORTIS [Suspect]
     Route: 048
     Dates: start: 20010725
  25. CIBACEN [Suspect]
     Route: 048
     Dates: start: 20010726
  26. BISACODYL [Suspect]
     Indication: CONSTIPATION
     Route: 065
     Dates: start: 20010727, end: 20010727
  27. MUCRET [Concomitant]
     Indication: UNEVALUABLE EVENT
     Dosage: DOSE REPORTED AS 1-1-0
     Route: 048
     Dates: end: 20010720
  28. THEOPHYLLINE [Concomitant]
     Dosage: DOSE REPORTED AS 1-0-2
     Route: 048
     Dates: end: 20010720
  29. BAMBEC [Concomitant]
     Dosage: DOSE REPORTED AS 0-0-1
     Route: 048
     Dates: end: 20010720
  30. SEREVENT [Concomitant]
     Dosage: DOSE REPORTED AS 12-0-2 HEAVES
     Route: 055
     Dates: end: 20010720
  31. JUNIK [Concomitant]
     Dosage: DOSE REPORTED AS 2-0-2- HEAVES.
     Route: 055
     Dates: end: 20010720
  32. DECORTIN [Concomitant]
     Dosage: DOSE REPORTED AS 1-0-0
     Route: 048
     Dates: end: 20010720
  33. ISOPTIN TAB [Concomitant]
     Indication: TACHYCARDIA
     Dosage: DOSE REPORTED AS 2-0-0 STOPPED ON 20 JUL 2001, AND RESTARTED AS 1-1-1 ON 25 JUL 2001.
     Route: 048
  34. VIGANTOLETTEN [Concomitant]
     Indication: VITAMIN D DEFICIENCY
     Route: 048
  35. ATOSIL [Concomitant]
     Indication: SLEEP APNOEA SYNDROME
     Route: 048
     Dates: start: 20010731, end: 20010731
  36. CALCIUM CARBONATE [Concomitant]
     Indication: CALCIUM DEFICIENCY
     Route: 048
     Dates: start: 20010720
  37. RINGER'S INJECTION [Concomitant]
     Indication: FLUID REPLACEMENT
     Route: 042
     Dates: start: 20010720
  38. KALINOR [Concomitant]
     Route: 048
     Dates: start: 20010721
  39. KCL TAB [Concomitant]
     Route: 042
     Dates: start: 20010725, end: 20010725

REACTIONS (3)
  - RENAL FAILURE [None]
  - SEPTIC SHOCK [None]
  - TOXIC EPIDERMAL NECROLYSIS [None]
